FAERS Safety Report 12882511 (Version 3)
Quarter: 2017Q1

REPORT INFORMATION
  Report Type: Report from Study
  Country: US (occurrence: US)
  Receive Date: 20161025
  Receipt Date: 20170113
  Transmission Date: 20170428
  Serious: Yes (Hospitalization)
  Sender: FDA-Public Use
  Company Number: US-PFIZER INC-2016465085

PATIENT
  Age: 52 Year
  Sex: Female
  Weight: 65.5 kg

DRUGS (5)
  1. PF-06671008 [Suspect]
     Active Substance: INVESTIGATIONAL PRODUCT
     Indication: COLON CANCER METASTATIC
     Dosage: 1300 NG, CYCLIC, WEEKLY DURING 21 DAY CYCLE
     Route: 042
     Dates: start: 20160725
  2. LORAZEPAM. [Concomitant]
     Active Substance: LORAZEPAM
     Indication: ANXIETY
     Dosage: 1 MG, AS NEEDED
     Route: 048
     Dates: start: 20150101
  3. OXYCODONE [Concomitant]
     Active Substance: OXYCODONE
     Indication: PAIN
     Dosage: 5 MG, EVERY 4-6 HOURS, AS NEEDED
     Route: 048
     Dates: start: 20150101
  4. VANCOMYCIN HCL [Suspect]
     Active Substance: VANCOMYCIN HYDROCHLORIDE
     Indication: INFECTION PROPHYLAXIS
     Dosage: 1 G, 2X/DAY (Q12H)
     Route: 042
     Dates: start: 20160928, end: 20160928
  5. ZOSYN [Suspect]
     Active Substance: PIPERACILLIN SODIUM\TAZOBACTAM SODIUM
     Indication: INFECTION PROPHYLAXIS
     Dosage: 4.5 G, 3X/DAY (Q8H)
     Route: 042
     Dates: start: 20160927, end: 20160928

REACTIONS (1)
  - Diarrhoea [Recovered/Resolved]

NARRATIVE: CASE EVENT DATE: 20161003
